FAERS Safety Report 12593521 (Version 1)
Quarter: 2016Q3

REPORT INFORMATION
  Report Type: Spontaneous
  Country: US (occurrence: US)
  Receive Date: 20160726
  Receipt Date: 20160726
  Transmission Date: 20161109
  Serious: No
  Sender: FDA-Public Use
  Company Number: US-ABBVIE-15P-163-1523126-00

PATIENT
  Age: 61 Year
  Sex: Female
  Weight: 77.63 kg

DRUGS (1)
  1. LEVOTHYROXINE. [Suspect]
     Active Substance: LEVOTHYROXINE
     Indication: HYPOTHYROIDISM
     Route: 065

REACTIONS (4)
  - Malaise [Unknown]
  - Laziness [Unknown]
  - Muscular weakness [Unknown]
  - Rash [Unknown]
